FAERS Safety Report 6380427-1 (Version None)
Quarter: 2009Q3

REPORT INFORMATION
  Report Type: 
  Country: None (occurrence: None)
  Receive Date: 20090929
  Receipt Date: 20090917
  Transmission Date: 20100115
  Serious: Yes (Other)
  Sender: FDA-Public Use
  Company Number: PHHY2008CA20719

PATIENT
  Sex: Female

DRUGS (2)
  1. ACLASTA [Suspect]
     Indication: OSTEOPOROSIS
     Dosage: 5 MG / 100 ML
     Dates: start: 20080828
  2. CELEBREX [Concomitant]
     Dosage: UNK

REACTIONS (11)
  - ARTHRALGIA [None]
  - DYSGEUSIA [None]
  - GAIT DISTURBANCE [None]
  - HEADACHE [None]
  - JOINT SWELLING [None]
  - MOVEMENT DISORDER [None]
  - MYALGIA [None]
  - PARAESTHESIA [None]
  - POSTURE ABNORMAL [None]
  - RED BLOOD CELL SEDIMENTATION RATE INCREASED [None]
  - VIRAL INFECTION [None]
